FAERS Safety Report 9300224 (Version 1)
Quarter: 2012Q4

REPORT INFORMATION
  Report Type: Spontaneous
  Country: US (occurrence: None)
  Receive Date: 20121109
  Receipt Date: 20121109
  Transmission Date: 20130627
  Serious: Yes (Hospitalization)
  Sender: FDA-Public Use
  Company Number: 2012S1000092

PATIENT
  Age: 52 Year
  Sex: Male
  Weight: 100 kg

DRUGS (16)
  1. CUBICIN [Suspect]
     Indication: CELLULITIS STAPHYLOCOCCAL
     Dates: start: 200703, end: 200703
  2. NAFCILLIN [Concomitant]
  3. WARFARIN [Concomitant]
  4. HYDRALAZINE [Concomitant]
  5. FUROSEMIDE [Concomitant]
  6. METFORMIN [Concomitant]
  7. SPIRONOLACTONE [Concomitant]
  8. METOPROLOL [Concomitant]
  9. VALSARTAN [Concomitant]
  10. AMLODIPINE [Concomitant]
  11. RISEDRONATE SODIUM [Concomitant]
  12. ACETAMINOPHEN W/OXYCODONE [Concomitant]
  13. INSULIN [Concomitant]
  14. POTASSIUM CHLORIDE [Concomitant]
  15. ACETYLSALICYLIC ACID [Concomitant]
  16. STOOL SOFTENER [Concomitant]

REACTIONS (2)
  - Mental status changes [None]
  - Off label use [None]
